FAERS Safety Report 8458193-5 (Version None)
Quarter: 2012Q2

REPORT INFORMATION
  Report Type: 
  Country: None (occurrence: None)
  Receive Date: 20120615
  Receipt Date: 20120531
  Transmission Date: 20120825
  Serious: Yes (Other)
  Sender: FDA-Public Use
  Company Number: 2011-4197

PATIENT
  Age: 78 Year
  Sex: Male

DRUGS (1)
  1. LANREOTIDE AUTOGEL (LANREOTIDE) (LANREOTIDE ACETATE) [Suspect]
     Indication: NEUROENDOCRINE TUMOUR
     Dosage: 120 MG (120 MG, 1 IN 28 D) SUBCUTANEOUS
     Route: 058

REACTIONS (5)
  - PNEUMONIA [None]
  - VOMITING [None]
  - CONSTIPATION [None]
  - DIARRHOEA [None]
  - DEHYDRATION [None]
